FAERS Safety Report 17098769 (Version 1)
Quarter: 2019Q4

REPORT INFORMATION
  Report Type: Spontaneous
  Country: CA (occurrence: CA)
  Receive Date: 20191202
  Receipt Date: 20191202
  Transmission Date: 20200122
  Serious: Yes (Other)
  Sender: FDA-Public Use
  Company Number: CA-AMGEN-CANSP2019199726

PATIENT
  Sex: Male

DRUGS (5)
  1. TEMOZOLOMIDE. [Concomitant]
     Active Substance: TEMOZOLOMIDE
  2. CISPLATIN. [Concomitant]
     Active Substance: CISPLATIN
  3. XGEVA [Suspect]
     Active Substance: DENOSUMAB
     Indication: METASTATIC NEOPLASM
     Dosage: 120 MILLIGRAM, QMO
     Route: 065
  4. CAPECITABINE. [Concomitant]
     Active Substance: CAPECITABINE
  5. ETOPOSIDE. [Concomitant]
     Active Substance: ETOPOSIDE

REACTIONS (4)
  - Metastases to peritoneum [Unknown]
  - Metastases to bone [Unknown]
  - Metastases to lung [Unknown]
  - Metastases to liver [Unknown]
